FAERS Safety Report 9665080 (Version 4)
Quarter: 2014Q1

REPORT INFORMATION
  Report Type: Spontaneous
  Country: ES (occurrence: ES)
  Receive Date: 20131101
  Receipt Date: 20140116
  Transmission Date: 20141002
  Serious: Yes (Hospitalization)
  Sender: FDA-Public Use
  Company Number: ES-ABBVIE-13P-144-1055721-00

PATIENT
  Age: 39 Year
  Sex: Female

DRUGS (3)
  1. KALETRA TABLETS [Suspect]
     Indication: HIV INFECTION
     Route: 048
     Dates: start: 20081103, end: 20121210
  2. HEMICRANEAL [Interacting]
     Indication: HEADACHE
     Dosage: 300 MG PARACETAMOL, 100 MG CAFFEINE, 1 MG ERGOTAMINE
     Route: 048
     Dates: start: 20121205, end: 20121205
  3. MARAVIROC [Concomitant]
     Indication: HIV INFECTION
     Dates: start: 20080813, end: 20121210

REACTIONS (18)
  - Peripheral ischaemia [Recovered/Resolved]
  - Arterial spasm [Recovered/Resolved]
  - Arterial spasm [Recovered/Resolved]
  - Arterial thrombosis [Recovered/Resolved]
  - Monoparesis [Recovered/Resolved]
  - Drug interaction [Recovered/Resolved]
  - Headache [Recovered/Resolved]
  - Phonophobia [Recovered/Resolved]
  - Photophobia [Recovered/Resolved]
  - Paraesthesia [Recovered/Resolved]
  - Paraesthesia [Recovered/Resolved]
  - Muscular weakness [Recovered/Resolved]
  - Peripheral coldness [Recovered/Resolved]
  - Cyanosis [Recovered/Resolved]
  - Malaise [Recovered/Resolved]
  - Balance disorder [Recovered/Resolved]
  - Hyperhidrosis [Recovered/Resolved]
  - Vomiting [Recovered/Resolved]
